FAERS Safety Report 8032925-2 (Version None)
Quarter: 2012Q1

REPORT INFORMATION
  Report Type: 
  Country: None (occurrence: None)
  Receive Date: 20120110
  Receipt Date: 20120102
  Transmission Date: 20120608
  Serious: Yes (Hospitalization)
  Sender: FDA-Public Use
  Company Number: AR-PFIZER INC-2012001124

PATIENT
  Age: 60 Year
  Sex: Female
  Weight: 67.6 kg

DRUGS (9)
  1. LEVOTHYROXINE [Concomitant]
     Indication: HYPOTHYROIDISM
     Dosage: UNK
     Route: 048
     Dates: start: 19880501
  2. SOMATROPIN [Suspect]
     Dosage: 1 IU, 1X/DAY
     Route: 058
     Dates: start: 19960517
  3. SOMATROPIN [Suspect]
     Dosage: 1.2 IU, 1X/DAY
     Route: 058
     Dates: start: 20020619
  4. SOMATROPIN [Suspect]
     Dosage: 0.8 IU, 1X/DAY
     Route: 058
     Dates: start: 20030214, end: 20050307
  5. SOMATROPIN [Suspect]
     Dosage: 1.5 IU, 1X/DAY
     Route: 058
     Dates: start: 20000215
  6. ALENDRONATE SODIUM [Concomitant]
     Indication: OSTEOPOROSIS
     Dosage: UNK
     Route: 048
     Dates: start: 19950201, end: 20050307
  7. SOMATROPIN [Suspect]
     Indication: HYPOPITUITARISM
     Dosage: 0.5 IU, 1X/DAY
     Route: 058
     Dates: start: 19960315
  8. HYDROCORTISONE [Concomitant]
     Indication: BLOOD CORTICOTROPHIN DECREASED
     Dosage: UNK
     Route: 048
     Dates: start: 19880501
  9. CALCIUM [Concomitant]
     Indication: OSTEOPOROSIS
     Dosage: UNK
     Route: 048
     Dates: start: 19911201, end: 20050307

REACTIONS (1)
  - COLON CANCER [None]
